FAERS Safety Report 16781892 (Version 1)
Quarter: 2019Q3

REPORT INFORMATION
  Report Type: Spontaneous
  Country: FR (occurrence: FR)
  Receive Date: 20190906
  Receipt Date: 20190906
  Transmission Date: 20191005
  Serious: Yes (Hospitalization, Other)
  Sender: FDA-Public Use
  Company Number: PHHY2019FR206671

PATIENT
  Age: 29 Year
  Sex: Male
  Weight: 97 kg

DRUGS (5)
  1. PARACETAMOL [Suspect]
     Active Substance: ACETAMINOPHEN
     Indication: GOUT
     Dosage: UNK
     Route: 065
  2. COLCHICINE. [Suspect]
     Active Substance: COLCHICINE
     Dosage: UNK
     Route: 065
  3. ALCOHOL. [Suspect]
     Active Substance: ALCOHOL
     Indication: GOUT
     Dosage: 554 G, QD EQUIVALENT TO TWO BOTTLES OF SPIRITS AND A BOTTLE OF WINE
     Route: 048
  4. COLCHICINE. [Suspect]
     Active Substance: COLCHICINE
     Indication: GOUT
     Dosage: 0.33 MG/KG, QD
     Route: 048
  5. PARACETAMOL [Suspect]
     Active Substance: ACETAMINOPHEN
     Dosage: 20 G, UNK
     Route: 048

REACTIONS (3)
  - Diarrhoea [Recovered/Resolved]
  - Poisoning deliberate [Recovered/Resolved]
  - Intentional overdose [Recovered/Resolved]
